FAERS Safety Report 11801436 (Version 5)
Quarter: 2017Q1

REPORT INFORMATION
  Report Type: Report from Study
  Country: US (occurrence: US)
  Receive Date: 20151204
  Receipt Date: 20170321
  Transmission Date: 20170428
  Serious: Yes (Hospitalization, Other)
  Sender: FDA-Public Use
  Company Number: US-EISAI MEDICAL RESEARCH-EC-2015-012044

PATIENT
  Age: 62 Year
  Sex: Male
  Weight: 137.9 kg

DRUGS (9)
  1. VIAGRA [Concomitant]
     Active Substance: SILDENAFIL CITRATE
  2. LEVOTHYROXINE. [Concomitant]
     Active Substance: LEVOTHYROXINE
  3. LISINOPRIL. [Concomitant]
     Active Substance: LISINOPRIL
  4. AMOXICILLIN POT-CLAVULANATE [Concomitant]
  5. LORCASERIN [Suspect]
     Active Substance: LORCASERIN HYDROCHLORIDE
     Indication: WEIGHT CONTROL
     Route: 048
     Dates: start: 20140515
  6. NOVOLIN 70/30 [Concomitant]
     Active Substance: INSULIN HUMAN
  7. CRESTOR [Concomitant]
     Active Substance: ROSUVASTATIN CALCIUM
  8. NORVASC [Concomitant]
     Active Substance: AMLODIPINE BESYLATE
  9. UROXATRAL [Concomitant]
     Active Substance: ALFUZOSIN HYDROCHLORIDE

REACTIONS (2)
  - Pharyngeal fistula [Recovered/Resolved]
  - Follicular thyroid cancer [Recovered/Resolved]

NARRATIVE: CASE EVENT DATE: 20150923
